FAERS Safety Report 16248070 (Version 1)
Quarter: 2019Q2

REPORT INFORMATION
  Report Type: Spontaneous
  Country: NL (occurrence: NL)
  Receive Date: 20190428
  Receipt Date: 20190428
  Transmission Date: 20190711
  Serious: Yes (Hospitalization)
  Sender: FDA-Public Use
  Company Number: PHHY2019NL094870

PATIENT
  Age: 53 Year
  Sex: Female
  Weight: 61 kg

DRUGS (2)
  1. DICLOFENAC [Suspect]
     Active Substance: DICLOFENAC
     Indication: MIGRAINE
     Dosage: 1 DF,(2 DAGEN 3 TABLETTEN DICLOFENAC GEBRUIKT)
     Route: 065
  2. DEXAMETHASONE. [Suspect]
     Active Substance: DEXAMETHASONE
     Indication: MIGRAINE
     Dosage: 1 DF, QD
     Route: 065
     Dates: start: 20190322

REACTIONS (9)
  - Fatigue [Unknown]
  - Pain in jaw [Unknown]
  - Heart rate abnormal [Unknown]
  - Chest discomfort [Unknown]
  - Hyperventilation [Unknown]
  - Blood pressure fluctuation [Unknown]
  - Swollen tongue [Unknown]
  - Burning sensation [Not Recovered/Not Resolved]
  - Erythema [Not Recovered/Not Resolved]

NARRATIVE: CASE EVENT DATE: 201903
